FAERS Safety Report 4825985-0 (Version None)
Quarter: 2005Q4

REPORT INFORMATION
  Report Type: 
  Country: None (occurrence: None)
  Receive Date: 20051111
  Receipt Date: 20050625
  Transmission Date: 20060501
  Serious: Yes (Hospitalization, Disabling)
  Sender: FDA-Public Use
  Company Number: US-MERCK-0506USA03611

PATIENT
  Sex: Female
  Weight: 82 kg

DRUGS (9)
  1. VIOXX [Suspect]
     Indication: ARTHRALGIA
     Route: 048
     Dates: start: 20030701, end: 20040821
  2. VIOXX [Suspect]
     Indication: MYALGIA
     Route: 048
     Dates: start: 20030701, end: 20040821
  3. PREDNISONE [Concomitant]
     Route: 065
  4. PREVACID [Concomitant]
     Route: 065
  5. SERZONE [Concomitant]
     Route: 065
  6. RELAFEN [Concomitant]
     Route: 065
  7. PLAQUENIL [Concomitant]
     Route: 065
  8. ZYRTEC [Concomitant]
     Route: 065
  9. KLONOPIN [Concomitant]
     Route: 065

REACTIONS (2)
  - CEREBROVASCULAR ACCIDENT [None]
  - VISUAL DISTURBANCE [None]
